FAERS Safety Report 16839482 (Version 1)
Quarter: 2019Q3

REPORT INFORMATION
  Report Type: Spontaneous
  Country: GB (occurrence: GB)
  Receive Date: 20190923
  Receipt Date: 20190923
  Transmission Date: 20191005
  Serious: Yes (Other)
  Sender: FDA-Public Use
  Company Number: GB-MYLANLABS-2019M1087895

PATIENT
  Age: 55 Year
  Sex: Female

DRUGS (2)
  1. CALCIUM                            /00241701/ [Concomitant]
     Dosage: UNK
  2. ALENDRONATE [Suspect]
     Active Substance: ALENDRONATE SODIUM
     Indication: OSTEOPOROSIS
     Dosage: 70 MILLIGRAM
     Route: 048
     Dates: start: 20171130, end: 20190305

REACTIONS (1)
  - Suicidal ideation [Recovering/Resolving]
